FAERS Safety Report 8383046 (Version 2)
Quarter: 2015Q1

REPORT INFORMATION
  Report Type: Report from Study
  Country: US (occurrence: US)
  Receive Date: 20120201
  Receipt Date: 20150310
  Transmission Date: 20150721
  Serious: Yes (Death, Hospitalization)
  Sender: FDA-Public Use
  Company Number: US-ROCHE-1035082

PATIENT
  Age: 62 Year
  Sex: Female
  Weight: 140 kg

DRUGS (21)
  1. AMBIEN [Concomitant]
     Active Substance: ZOLPIDEM TARTRATE
     Route: 048
  2. ABRAXANE [Suspect]
     Active Substance: PACLITAXEL
     Indication: PRODUCT USED FOR UNKNOWN INDICATION
     Route: 065
     Dates: start: 200607, end: 200610
  3. CIPROFLOXACIN. [Concomitant]
     Active Substance: CIPROFLOXACIN
     Route: 065
  4. PEGFILGRASTIM [Concomitant]
     Active Substance: PEGFILGRASTIM
     Route: 065
  5. ZOLOFT [Concomitant]
     Active Substance: SERTRALINE HYDROCHLORIDE
     Route: 048
  6. CLOTRIMAZOLE. [Concomitant]
     Active Substance: CLOTRIMAZOLE
     Route: 065
  7. COUMADIN [Concomitant]
     Active Substance: WARFARIN SODIUM
     Route: 065
  8. BENADRYL [Concomitant]
     Active Substance: DIPHENHYDRAMINE HYDROCHLORIDE
     Route: 065
  9. TYLENOL [Concomitant]
     Active Substance: ACETAMINOPHEN
     Route: 065
  10. AVASTIN [Suspect]
     Active Substance: BEVACIZUMAB
     Indication: BREAST CANCER FEMALE
     Route: 042
     Dates: start: 200609, end: 200702
  11. ARANESP [Concomitant]
     Active Substance: DARBEPOETIN ALFA
     Route: 065
  12. ZOMETA [Concomitant]
     Active Substance: ZOLEDRONIC ACID
     Route: 065
  13. GRANISETRON [Concomitant]
     Active Substance: GRANISETRON
     Route: 065
  14. DECADRON [Concomitant]
     Active Substance: DEXAMETHASONE
     Route: 065
  15. XELODA [Suspect]
     Active Substance: CAPECITABINE
     Indication: BREAST CANCER FEMALE
     Route: 065
     Dates: start: 200505, end: 200603
  16. DOXIL [Concomitant]
     Active Substance: DOXORUBICIN HYDROCHLORIDE
     Route: 065
     Dates: start: 200701
  17. NORCO [Suspect]
     Active Substance: ACETAMINOPHEN\HYDROCODONE BITARTRATE
     Indication: PRODUCT USED FOR UNKNOWN INDICATION
     Dosage: 1 TO 1/2 TABLET EVERY 4-6 HRS PRN, 10/325 MG
     Route: 048
  18. TAXOL [Concomitant]
     Active Substance: PACLITAXEL
     Route: 065
  19. AMOXICILLIN. [Concomitant]
     Active Substance: AMOXICILLIN
     Route: 065
  20. NAVELBINE [Suspect]
     Active Substance: VINORELBINE TARTRATE
     Indication: PRODUCT USED FOR UNKNOWN INDICATION
     Route: 042
     Dates: start: 200604, end: 200607
  21. VICODIN [Concomitant]
     Active Substance: ACETAMINOPHEN\HYDROCODONE BITARTRATE
     Route: 065

REACTIONS (56)
  - Breath sounds abnormal [Unknown]
  - Hypercalcaemia [Recovered/Resolved]
  - Early satiety [Recovered/Resolved]
  - Arthralgia [Unknown]
  - Diarrhoea [Unknown]
  - Pain [Unknown]
  - Dry skin [Unknown]
  - Death [Fatal]
  - Dehydration [Recovered/Resolved]
  - Disease progression [Recovering/Resolving]
  - Pharyngeal ulceration [Unknown]
  - Mucosal inflammation [Recovering/Resolving]
  - Back pain [Unknown]
  - Insomnia [Unknown]
  - Neutropenia [Unknown]
  - Dysuria [Unknown]
  - Urine odour abnormal [Unknown]
  - Myalgia [Unknown]
  - Apathy [Unknown]
  - Nausea [Unknown]
  - Liver function test abnormal [Unknown]
  - Fatigue [Unknown]
  - Constipation [Unknown]
  - Pain in extremity [Unknown]
  - Weight decreased [Unknown]
  - Decreased appetite [Unknown]
  - Metastases to liver [Recovering/Resolving]
  - Pelvic pain [Unknown]
  - Blood alkaline phosphatase decreased [Unknown]
  - Lacrimation increased [Unknown]
  - Asthenia [Recovered/Resolved]
  - Tongue ulceration [Unknown]
  - Escherichia urinary tract infection [Recovered/Resolved]
  - Abdominal pain [Recovered/Resolved]
  - Dry mouth [Unknown]
  - Blood lactate dehydrogenase increased [Unknown]
  - Thirst [Unknown]
  - Tenderness [Unknown]
  - Epistaxis [Unknown]
  - Feeling abnormal [Unknown]
  - Abdominal discomfort [Unknown]
  - Anaemia [Recovered/Resolved]
  - Burning sensation [Unknown]
  - Anxiety [Unknown]
  - Hyperhidrosis [Unknown]
  - Mood swings [Unknown]
  - Stomatitis [Unknown]
  - Abdominal distension [Recovered/Resolved]
  - Ascites [Unknown]
  - Flank pain [Unknown]
  - Oral candidiasis [Unknown]
  - Hypokalaemia [Unknown]
  - Hypomagnesaemia [Unknown]
  - Lip pain [Unknown]
  - Emotional disorder [Unknown]
  - Skin toxicity [Unknown]

NARRATIVE: CASE EVENT DATE: 20060818
